FAERS Safety Report 8208597-0 (Version None)
Quarter: 2012Q1

REPORT INFORMATION
  Report Type: 
  Country: None (occurrence: None)
  Receive Date: 20120314
  Receipt Date: 20120306
  Transmission Date: 20120608
  Serious: Yes (Other)
  Sender: FDA-Public Use
  Company Number: GB-GLAXOSMITHKLINE-B0786155A

PATIENT
  Sex: Female

DRUGS (5)
  1. KEPPRA [Concomitant]
  2. CLONAZEPAM [Concomitant]
  3. POTIGA [Suspect]
     Indication: PRODUCT USED FOR UNKNOWN INDICATION
     Dosage: 50MG TWICE PER DAY
     Route: 065
     Dates: start: 20120101, end: 20120201
  4. ANTIBIOTICS [Concomitant]
  5. TEGRETOL [Concomitant]

REACTIONS (6)
  - NAUSEA [None]
  - VIRAL INFECTION [None]
  - DIZZINESS [None]
  - CONVULSION [None]
  - MALAISE [None]
  - FATIGUE [None]
